FAERS Safety Report 15486571 (Version 2)
Quarter: 2019Q1

REPORT INFORMATION
  Report Type: Spontaneous
  Country: PL (occurrence: PL)
  Receive Date: 20181011
  Receipt Date: 20190104
  Transmission Date: 20190417
  Serious: Yes (Other)
  Sender: FDA-Public Use
  Company Number: PL-ROCHE-2192933

PATIENT
  Sex: Male

DRUGS (6)
  1. CAPECITABINE. [Suspect]
     Active Substance: CAPECITABINE
     Indication: COLORECTAL CANCER
     Route: 065
     Dates: start: 20180709
  2. FLUOROURACIL. [Suspect]
     Active Substance: FLUOROURACIL
     Indication: COLORECTAL CANCER
     Route: 065
  3. IRINOTECAN [Concomitant]
     Active Substance: IRINOTECAN
     Indication: COLORECTAL CANCER
  4. OXALIPLATIN. [Suspect]
     Active Substance: OXALIPLATIN
     Indication: COLORECTAL CANCER
     Route: 065
  5. AVASTIN [Suspect]
     Active Substance: BEVACIZUMAB
     Indication: COLON CANCER
     Route: 042
     Dates: start: 20141201, end: 20150601
  6. FOLINIC ACID [Suspect]
     Active Substance: LEUCOVORIN
     Indication: COLORECTAL CANCER
     Route: 065

REACTIONS (14)
  - Peritoneal disorder [Unknown]
  - Drug hypersensitivity [Unknown]
  - Neuropathy peripheral [Unknown]
  - Hypersensitivity [Unknown]
  - Haematotoxicity [Recovered/Resolved]
  - Anuria [Unknown]
  - Glomerular filtration rate decreased [Unknown]
  - Abdominal pain [Unknown]
  - General physical health deterioration [Unknown]
  - Tremor [Unknown]
  - Thrombocytopenia [Unknown]
  - Skin toxicity [Unknown]
  - Blood creatinine increased [Unknown]
  - Thrombocytopenia [Recovered/Resolved]
